FAERS Safety Report 8628602 (Version 2)
Quarter: 2012Q4

REPORT INFORMATION
  Report Type: Report from Study
  Country: JP (occurrence: JP)
  Receive Date: 20120621
  Receipt Date: 20121004
  Transmission Date: 20130627
  Serious: Yes (Life-Threatening, Hospitalization, Other)
  Sender: FDA-Public Use
  Company Number: JP-ROCHE-1079016

PATIENT
  Age: 76 None
  Sex: Female

DRUGS (31)
  1. ROACTEMRA [Suspect]
     Indication: RHEUMATOID ARTHRITIS
     Route: 041
     Dates: start: 20080925, end: 20080925
  2. ROACTEMRA [Suspect]
     Indication: RHEUMATOID ARTHRITIS
     Route: 041
     Dates: start: 20081023, end: 20081023
  3. ROACTEMRA [Suspect]
     Indication: RHEUMATOID ARTHRITIS
     Route: 041
     Dates: start: 20081120, end: 20081120
  4. ROACTEMRA [Suspect]
     Indication: RHEUMATOID ARTHRITIS
     Route: 041
     Dates: start: 20081217, end: 20081217
  5. ROACTEMRA [Suspect]
     Indication: RHEUMATOID ARTHRITIS
     Route: 041
     Dates: start: 20090115, end: 20090115
  6. ROACTEMRA [Suspect]
     Indication: RHEUMATOID ARTHRITIS
     Route: 041
     Dates: start: 20090212, end: 20090212
  7. ROACTEMRA [Suspect]
     Indication: RHEUMATOID ARTHRITIS
     Route: 041
     Dates: start: 20090318, end: 20090318
  8. ROACTEMRA [Suspect]
     Indication: RHEUMATOID ARTHRITIS
     Route: 041
     Dates: start: 20090415, end: 20090415
  9. ROACTEMRA [Suspect]
     Indication: RHEUMATOID ARTHRITIS
     Route: 041
     Dates: start: 20090513, end: 20090513
  10. ROACTEMRA [Suspect]
     Indication: RHEUMATOID ARTHRITIS
     Route: 041
     Dates: start: 20090610, end: 20090610
  11. ROACTEMRA [Suspect]
     Indication: RHEUMATOID ARTHRITIS
     Route: 041
     Dates: start: 20090708, end: 20090708
  12. ROACTEMRA [Suspect]
     Indication: RHEUMATOID ARTHRITIS
     Route: 041
     Dates: start: 20090805, end: 20090805
  13. ROACTEMRA [Suspect]
     Indication: RHEUMATOID ARTHRITIS
     Route: 041
     Dates: start: 20090902, end: 20090902
  14. ROACTEMRA [Suspect]
     Indication: RHEUMATOID ARTHRITIS
     Route: 041
     Dates: start: 20090930, end: 20090930
  15. PREDNISOLONE [Concomitant]
     Indication: RHEUMATOID ARTHRITIS
     Route: 048
  16. CALONAL [Concomitant]
     Indication: RHEUMATOID ARTHRITIS
     Route: 048
  17. ALFACALCIDOL [Concomitant]
     Indication: RHEUMATOID ARTHRITIS
     Route: 048
  18. OMEPRAL [Concomitant]
     Indication: RHEUMATOID ARTHRITIS
     Route: 048
  19. AMARYL [Concomitant]
     Indication: RHEUMATOID ARTHRITIS
     Route: 048
  20. ITOROL [Concomitant]
     Indication: RHEUMATOID ARTHRITIS
     Route: 048
  21. EURAX [Concomitant]
     Indication: RHEUMATOID ARTHRITIS
     Dosage: Dosage is uncertain.
     Route: 003
  22. KENTAN [Concomitant]
     Indication: RHEUMATOID ARTHRITIS
     Dosage: Hurt and when it is awful
     Route: 048
  23. STARSIS [Concomitant]
     Indication: DIABETES MELLITUS
     Route: 048
  24. PL [Concomitant]
     Route: 048
  25. GENTACIN [Concomitant]
     Dosage: One-twice on uncertain dosage and one
     Route: 061
  26. XALATAN [Concomitant]
     Dosage: Administering is uncertain.
     Route: 047
  27. DEPAS [Concomitant]
     Route: 048
  28. ROHYPNOL [Concomitant]
     Route: 048
  29. ALFAROL [Concomitant]
     Route: 048
  30. ALFACALCIDOL [Concomitant]
     Indication: RHEUMATOID ARTHRITIS
     Route: 048
  31. LASIX [Concomitant]
     Indication: RHEUMATOID ARTHRITIS
     Route: 048

REACTIONS (3)
  - Myocardial infarction [Unknown]
  - Joint dislocation [Unknown]
  - Cardiac failure [Unknown]
